FAERS Safety Report 19783862 (Version 1)
Quarter: 2021Q3

REPORT INFORMATION
  Report Type: Spontaneous
  Country: US (occurrence: US)
  Receive Date: 20210902
  Receipt Date: 20210902
  Transmission Date: 20211014
  Serious: No
  Sender: FDA-Public Use
  Company Number: None

PATIENT
  Age: 56 Year
  Sex: Female
  Weight: 58.5 kg

DRUGS (5)
  1. PANTOPRAZOLE [Concomitant]
     Active Substance: PANTOPRAZOLE
  2. VITAMIN D [Concomitant]
     Active Substance: VITAMIN D NOS
  3. CALCIUM [Concomitant]
     Active Substance: CALCIUM
  4. RECLAST [Suspect]
     Active Substance: ZOLEDRONIC ACID
     Indication: OSTEOPOROSIS
     Route: 042
     Dates: start: 20210831, end: 20210831
  5. MULTIVITAMIN [Concomitant]
     Active Substance: VITAMINS

REACTIONS (8)
  - Nausea [None]
  - Hyperhidrosis [None]
  - Joint swelling [None]
  - Insomnia [None]
  - Pain [None]
  - Taste disorder [None]
  - Gait disturbance [None]
  - Asthenia [None]

NARRATIVE: CASE EVENT DATE: 20210901
